FAERS Safety Report 7287701-5 (Version None)
Quarter: 2011Q1

REPORT INFORMATION
  Report Type: 
  Country: None (occurrence: None)
  Receive Date: 20110208
  Receipt Date: 20110208
  Transmission Date: 20110831
  Serious: Yes (Life-Threatening, Hospitalization)
  Sender: FDA-Public Use
  Company Number: None

PATIENT
  Age: 47 Year
  Sex: Female
  Weight: 72.5755 kg

DRUGS (2)
  1. MAXALT [Suspect]
     Indication: MIGRAINE
     Dosage: 10 MG AS NEEDED PO
     Route: 048
  2. LEVOXYL [Concomitant]

REACTIONS (2)
  - PAIN IN EXTREMITY [None]
  - MYOCARDIAL INFARCTION [None]
